FAERS Safety Report 10075628 (Version 1)
Quarter: 2014Q2

REPORT INFORMATION
  Report Type: Report from Study
  Country: IT (occurrence: IT)
  Receive Date: 20140414
  Receipt Date: 20140414
  Transmission Date: 20141212
  Serious: Yes (Other)
  Sender: FDA-Public Use
  Company Number: IT-MYLANLABS-2014S1007973

PATIENT
  Sex: 0

DRUGS (1)
  1. ESCITALOPRAM [Suspect]
     Dosage: 20 MG/DAY
     Route: 064

REACTIONS (2)
  - Congenital nose malformation [Unknown]
  - Foetal exposure during pregnancy [Unknown]
